FAERS Safety Report 25625345 (Version 4)
Quarter: 2025Q4

REPORT INFORMATION
  Report Type: Spontaneous
  Country: US (occurrence: US)
  Receive Date: 20250731
  Receipt Date: 20251224
  Transmission Date: 20260117
  Serious: Yes (Hospitalization, Other)
  Sender: BIOVITRUM
  Company Number: US-BIOVITRUM-2025-US-010442

PATIENT
  Age: 72 Year
  Sex: Female

DRUGS (1)
  1. VONJO [Suspect]
     Active Substance: PACRITINIB
     Indication: Myelofibrosis
     Dosage: TWICE A DAY
     Route: 048
     Dates: start: 20241122

REACTIONS (8)
  - Alopecia [Not Recovered/Not Resolved]
  - Headache [Unknown]
  - Gastrointestinal disorder [Recovering/Resolving]
  - Abdominal pain upper [Recovering/Resolving]
  - Dehydration [Unknown]
  - Blindness transient [Unknown]
  - Diarrhoea [Unknown]
  - Weight decreased [Unknown]
